FAERS Safety Report 5363801-1 (Version None)
Quarter: 2007Q2

REPORT INFORMATION
  Report Type: 
  Country: None (occurrence: None)
  Receive Date: 20070620
  Receipt Date: 20070608
  Transmission Date: 20071010
  Serious: Yes (Other)
  Sender: FDA-Public Use
  Company Number: US-MERCK-0706USA02599

PATIENT
  Age: 64 Year
  Sex: Female

DRUGS (3)
  1. ZOCOR [Suspect]
     Route: 048
  2. DOTHIEPIN HYDROCHLORIDE [Concomitant]
     Route: 065
  3. ISOCARBOXAZID [Concomitant]
     Route: 065

REACTIONS (4)
  - AMYOTROPHIC LATERAL SCLEROSIS [None]
  - DYSPHAGIA [None]
  - SPEECH DISORDER [None]
  - THROAT IRRITATION [None]
